FAERS Safety Report 6452840-5 (Version None)
Quarter: 2009Q4

REPORT INFORMATION
  Report Type: 
  Country: None (occurrence: None)
  Receive Date: 20091102
  Receipt Date: 20091102
  Transmission Date: 20100525
  Serious: Yes (Hospitalization, Congenital Anomaly, Other)
  Sender: FDA-Public Use
  Company Number: 2009AL006980

PATIENT
  Sex: Male
  Weight: 1.69 kg

DRUGS (5)
  1. FLUDARABINE PHOSPHATE [Suspect]
     Indication: DRUG EXPOSURE DURING PREGNANCY
     Dosage: 30 MG/M**2;TRPL
     Route: 064
  2. CYTARABINE [Concomitant]
  3. MITOXANTRONE [Concomitant]
  4. IDARUBICIN HCL [Concomitant]
  5. GEMTUZUMAB OZOGAMICIN [Concomitant]

REACTIONS (11)
  - ANAEMIA NEONATAL [None]
  - CAESAREAN SECTION [None]
  - CARDIAC HYPERTROPHY [None]
  - CARDIOMYOPATHY [None]
  - CEREBRAL VENTRICLE DILATATION [None]
  - CORONARY ARTERY DILATATION [None]
  - MATERNAL DRUGS AFFECTING FOETUS [None]
  - PERICARDIAL EFFUSION [None]
  - PLACENTAL INSUFFICIENCY [None]
  - SMALL FOR DATES BABY [None]
  - SUPRAVENTRICULAR EXTRASYSTOLES [None]
